FAERS Safety Report 8576968-9 (Version None)
Quarter: 2012Q3

REPORT INFORMATION
  Report Type: 
  Country: None (occurrence: None)
  Receive Date: 20120807
  Receipt Date: 20120723
  Transmission Date: 20120928
  Serious: Yes (Death, Hospitalization)
  Sender: FDA-Public Use
  Company Number: IT-WATSON-2012-13465

PATIENT
  Age: 23 Year
  Sex: Male

DRUGS (5)
  1. CLARITHROMYCIN [Suspect]
     Indication: OROPHARYNGEAL PAIN
     Dosage: 2 G, SINGLE
     Route: 065
  2. ORPHENADRINE CITRATE [Suspect]
     Indication: SCHIZOAFFECTIVE DISORDER
     Dosage: UNK
     Route: 065
  3. LITHIUM CARBONATE [Suspect]
     Indication: SCHIZOAFFECTIVE DISORDER
     Dosage: UNK
     Route: 065
  4. CLARITHROMYCIN [Suspect]
     Dosage: 500 MG, DAILY
     Route: 065
  5. AMISULPRIDE (UNKNOWN) [Suspect]
     Indication: SCHIZOAFFECTIVE DISORDER
     Dosage: UNK
     Route: 065

REACTIONS (4)
  - DIARRHOEA [None]
  - EPISTAXIS [None]
  - HEPATITIS FULMINANT [None]
  - VOMITING [None]
